FAERS Safety Report 19849467 (Version 1)
Quarter: 2021Q3

REPORT INFORMATION
  Report Type: Spontaneous
  Country: ES (occurrence: ES)
  Receive Date: 20210917
  Receipt Date: 20210917
  Transmission Date: 20211014
  Serious: Yes (Other)
  Sender: FDA-Public Use
  Company Number: ES-MYLANLABS-2021M1063564

PATIENT
  Age: 84 Year
  Sex: Male
  Weight: 76 kg

DRUGS (10)
  1. IRBESARTAN. [Concomitant]
     Active Substance: IRBESARTAN
     Dosage: UNK
  2. ALLOPURINOL. [Concomitant]
     Active Substance: ALLOPURINOL
     Dosage: UNK
  3. ATORVASTATIN [Concomitant]
     Active Substance: ATORVASTATIN
     Dosage: UNK
  4. SALMETEROL [Concomitant]
     Active Substance: SALMETEROL
     Dosage: UNK
  5. BISOPROLOL [Concomitant]
     Active Substance: BISOPROLOL
     Dosage: UNK
  6. DEXAMETHASONE. [Suspect]
     Active Substance: DEXAMETHASONE
     Indication: RASH
     Dosage: UNK
     Route: 065
  7. ERLOTINIB [Interacting]
     Active Substance: ERLOTINIB
     Indication: NON-SMALL CELL LUNG CANCER
     Dosage: UNK
     Route: 048
  8. ERLOTINIB [Interacting]
     Active Substance: ERLOTINIB
     Indication: ACQUIRED GENE MUTATION
     Dosage: 150 MILLIGRAM
     Route: 048
  9. ERLOTINIB [Interacting]
     Active Substance: ERLOTINIB
     Dosage: UNK
     Route: 048
  10. ACENOCOUMAROL [Concomitant]
     Active Substance: ACENOCOUMAROL
     Dosage: UNK

REACTIONS (2)
  - Rash [Recovered/Resolved]
  - Drug interaction [Unknown]
